FAERS Safety Report 10411947 (Version 1)
Quarter: 2014Q3

REPORT INFORMATION
  Report Type: Spontaneous
  Country: US (occurrence: None)
  Receive Date: 20140826
  Receipt Date: 20140826
  Transmission Date: 20150326
  Serious: No
  Sender: FDA-Public Use
  Company Number: None

PATIENT
  Age: 30 Year
  Sex: Male
  Weight: 99.79 kg

DRUGS (1)
  1. OXYCODONE 15MG ZYGENERICS [Suspect]
     Active Substance: OXYCODONE
     Indication: PAIN
     Dosage: 2 TABS EVERY 4 HOURS?QID?ORAL
     Route: 048
     Dates: start: 20140812, end: 20140823

REACTIONS (3)
  - Product substitution issue [None]
  - Drug effect decreased [None]
  - Product quality issue [None]

NARRATIVE: CASE EVENT DATE: 20140823
